FAERS Safety Report 8904000 (Version 1)
Quarter: 2012Q4

REPORT INFORMATION
  Report Type: 
  Country: US (occurrence: US)
  Receive Date: 20121112
  Receipt Date: 20121112
  Transmission Date: 20130627
  Serious: No
  Sender: FDA-Public Use
  Company Number: US-009507513-1210USA013874

PATIENT
  Weight: 63.95 kg

DRUGS (1)
  1. NEXPLANON [Suspect]
     Dosage: 1 rod
     Route: 059
     Dates: start: 20121029

REACTIONS (1)
  - Device difficult to use [Unknown]
